FAERS Safety Report 15707099 (Version 1)
Quarter: 2018Q4

REPORT INFORMATION
  Report Type: Spontaneous
  Country: JP (occurrence: JP)
  Receive Date: 20181210
  Receipt Date: 20181210
  Transmission Date: 20190205
  Serious: Yes (Other)
  Sender: FDA-Public Use
  Company Number: JP-BAXTER-2018BAX029917

PATIENT
  Sex: Male

DRUGS (2)
  1. UROMITEXAN 400 MG [Suspect]
     Active Substance: MESNA
     Indication: OSTEOSARCOMA
     Dosage: FIRST COURSE OF TREATMENT
     Route: 065
  2. HOLOXAN [Suspect]
     Active Substance: IFOSFAMIDE
     Indication: OSTEOSARCOMA
     Dosage: FIRST COURSE OF TREATMENT
     Route: 065

REACTIONS (1)
  - Cystitis haemorrhagic [Unknown]
